FAERS Safety Report 23950500 (Version 9)
Quarter: 2025Q1

REPORT INFORMATION
  Report Type: Spontaneous
  Country: US (occurrence: US)
  Receive Date: 20240607
  Receipt Date: 20250121
  Transmission Date: 20250408
  Serious: Yes (Hospitalization)
  Sender: PFIZER
  Company Number: US-PFIZER INC-PV202400073178

PATIENT
  Age: 60 Year
  Sex: Male

DRUGS (2)
  1. MEKTOVI [Suspect]
     Active Substance: BINIMETINIB
     Indication: Malignant melanoma
     Dosage: THREE 15 MG TABSEVERY 12 HOURS
     Route: 048
     Dates: start: 20230920
  2. BRAFTOVI [Suspect]
     Active Substance: ENCORAFENIB
     Indication: Malignant melanoma
     Dosage: SIX 75 MG CAPS DAILY
     Route: 048

REACTIONS (4)
  - Pyrexia [Unknown]
  - Rash [Unknown]
  - Chills [Unknown]
  - Weight increased [Unknown]

NARRATIVE: CASE EVENT DATE: 20240525
